FAERS Safety Report 15922358 (Version 1)
Quarter: 2019Q1

REPORT INFORMATION
  Report Type: Report from Study
  Country: None (occurrence: US)
  Receive Date: 20190206
  Receipt Date: 20190206
  Transmission Date: 20190417
  Serious: Yes (Hospitalization, Other)
  Sender: FDA-Public Use
  Company Number: US-ABBVIE-18K-163-2470056-00

PATIENT
  Age: 63 Year
  Sex: Female

DRUGS (1)
  1. HUMIRA [Suspect]
     Active Substance: ADALIMUMAB
     Indication: RHEUMATOID ARTHRITIS
     Route: 058
     Dates: start: 20180810, end: 201812

REACTIONS (11)
  - Diabetic foot [Recovering/Resolving]
  - Diabetic wound [Recovering/Resolving]
  - Hospitalisation [Recovered/Resolved]
  - Limb injury [Recovering/Resolving]
  - Injury [Recovering/Resolving]
  - Arthropathy [Recovering/Resolving]
  - Tendon injury [Recovering/Resolving]
  - Contusion [Unknown]
  - Fall [Recovering/Resolving]
  - Fall [Recovering/Resolving]
  - Arthralgia [Recovering/Resolving]

NARRATIVE: CASE EVENT DATE: 20180905
